FAERS Safety Report 17173691 (Version 2)
Quarter: 2019Q4

REPORT INFORMATION
  Report Type: Report from Study
  Country: None (occurrence: US)
  Receive Date: 20191218
  Receipt Date: 20191219
  Transmission Date: 20200122
  Serious: Yes (Hospitalization, Other)
  Sender: FDA-Public Use
  Company Number: US-ABBVIE-19K-163-3198694-00

PATIENT
  Age: 27 Year
  Sex: Male

DRUGS (3)
  1. HUMIRA [Suspect]
     Active Substance: ADALIMUMAB
     Indication: COLITIS ULCERATIVE
     Dosage: DAY1-80 MG/0.8 ML X 2
     Route: 058
     Dates: start: 20191119, end: 20191119
  2. HUMIRA [Suspect]
     Active Substance: ADALIMUMAB
     Dosage: DAY15
     Route: 058
     Dates: start: 20191203, end: 20191203
  3. HUMIRA [Suspect]
     Active Substance: ADALIMUMAB
     Indication: COLITIS ULCERATIVE
     Route: 058
     Dates: start: 201912

REACTIONS (12)
  - Impaired work ability [Unknown]
  - Depressed mood [Unknown]
  - Loss of personal independence in daily activities [Unknown]
  - Insomnia [Unknown]
  - Bipolar disorder [Unknown]
  - Blood iron decreased [Unknown]
  - Fear [Unknown]
  - Clostridium difficile infection [Unknown]
  - Chills [Unknown]
  - Haemoglobin decreased [Unknown]
  - Colitis ulcerative [Unknown]
  - Anxiety [Unknown]

NARRATIVE: CASE EVENT DATE: 2019
